FAERS Safety Report 20197519 (Version 1)
Quarter: 2021Q4

REPORT INFORMATION
  Report Type: Spontaneous
  Country: US (occurrence: US)
  Receive Date: 20211217
  Receipt Date: 20211217
  Transmission Date: 20220303
  Serious: No
  Sender: FDA-Public Use
  Company Number: US-ORG100016242-2021000429

PATIENT

DRUGS (2)
  1. EXPAREL [Suspect]
     Active Substance: BUPIVACAINE
     Dosage: 20 ML
     Route: 065
     Dates: start: 20210818, end: 20210818
  2. BUPIVACAINE [Suspect]
     Active Substance: BUPIVACAINE
     Dosage: NOT PROVIDED
     Route: 065
     Dates: start: 20210818, end: 20210818

REACTIONS (2)
  - Drug ineffective [Unknown]
  - Procedural pain [Unknown]

NARRATIVE: CASE EVENT DATE: 20210819
